FAERS Safety Report 9379170 (Version 2)
Quarter: 2013Q3

REPORT INFORMATION
  Report Type: Spontaneous
  Country: US (occurrence: US)
  Receive Date: 20130702
  Receipt Date: 20130715
  Transmission Date: 20140515
  Serious: Yes (Hospitalization)
  Sender: FDA-Public Use
  Company Number: US-JNJFOC-20130613075

PATIENT
  Age: 27 Year
  Sex: Male
  Weight: 79.38 kg

DRUGS (2)
  1. RISPERDAL CONSTA [Suspect]
     Indication: PRODUCT USED FOR UNKNOWN INDICATION
     Route: 030
     Dates: start: 201304
  2. DEPAKOTE [Concomitant]
     Route: 065

REACTIONS (2)
  - Hospitalisation [Unknown]
  - Drug dose omission [Unknown]
